FAERS Safety Report 5504702-5 (Version None)
Quarter: 2007Q4

REPORT INFORMATION
  Report Type: 
  Country: None (occurrence: None)
  Receive Date: 20071031
  Receipt Date: 20071022
  Transmission Date: 20080405
  Serious: Yes (Hospitalization, Other)
  Sender: FDA-Public Use
  Company Number: A-CH2007-18032

PATIENT
  Age: 53 Year
  Sex: Female
  Weight: 51 kg

DRUGS (8)
  1. TRACLEER [Suspect]
     Indication: PULMONARY HYPERTENSION
     Dosage: 62.5 MG, BID, ORAL, 125 MG, BID, ORAL
     Route: 048
     Dates: start: 20060221, end: 20060326
  2. TRACLEER [Suspect]
     Indication: PULMONARY HYPERTENSION
     Dosage: 62.5 MG, BID, ORAL, 125 MG, BID, ORAL
     Route: 048
     Dates: start: 20060327, end: 20070710
  3. BUMETANIDE [Concomitant]
  4. ALDACTONE [Concomitant]
  5. ENOXAPARIN SODIUM [Concomitant]
  6. ADALAT [Concomitant]
  7. LEVOTHYROXINE SODIUM [Concomitant]
  8. FLOLAN [Concomitant]

REACTIONS (4)
  - EXTREMITY NECROSIS [None]
  - LUNG TRANSPLANT [None]
  - PULMONARY FIBROSIS [None]
  - SUBDURAL HAEMATOMA [None]
